FAERS Safety Report 23975748 (Version 1)
Quarter: 2024Q2

REPORT INFORMATION
  Report Type: Spontaneous
  Country: US (occurrence: US)
  Receive Date: 20240614
  Receipt Date: 20240614
  Transmission Date: 20240716
  Serious: No
  Sender: FDA-Public Use
  Company Number: US-HALEON-2181720

PATIENT
  Age: 62 Year
  Sex: Female

DRUGS (1)
  1. ABREVA [Suspect]
     Active Substance: DOCOSANOL
     Indication: Oral herpes
     Dosage: EXPDATE:20250930
     Dates: start: 20240602, end: 20240613

REACTIONS (2)
  - Drug ineffective [Unknown]
  - Product use issue [Unknown]
